FAERS Safety Report 9402694 (Version 2)
Quarter: 2013Q4

REPORT INFORMATION
  Report Type: Report from Study
  Country: JP (occurrence: JP)
  Receive Date: 20130716
  Receipt Date: 20131104
  Transmission Date: 20140711
  Serious: Yes (Hospitalization)
  Sender: FDA-Public Use
  Company Number: JP-ASTELLAS-2013JP007557

PATIENT
  Age: 40 Year
  Sex: Female
  Weight: 50 kg

DRUGS (23)
  1. TACROLIMUS CAPSULES [Suspect]
     Indication: LUPUS NEPHRITIS
     Dosage: 3 MG, UNKNOWN/D
     Route: 048
     Dates: start: 20080902, end: 20121008
  2. TACROLIMUS CAPSULES [Suspect]
     Dosage: 1 MG, UID/QD
     Route: 048
     Dates: start: 20070507, end: 20071029
  3. TACROLIMUS CAPSULES [Suspect]
     Dosage: 2 MG, UNKNOWN/D
     Route: 048
     Dates: start: 20071030, end: 20080901
  4. TACROLIMUS CAPSULES [Suspect]
     Dosage: 1 MG, UNKNOWN/D
     Route: 048
     Dates: start: 20121009, end: 20121203
  5. TACROLIMUS CAPSULES [Suspect]
     Dosage: 1 MG, UNKNOWN/D
     Route: 048
     Dates: start: 20130129
  6. PREDONINE                          /00016201/ [Concomitant]
     Indication: LUPUS NEPHRITIS
     Dosage: 15 MG, UNKNOWN/D
     Route: 048
     Dates: end: 20071029
  7. PREDONINE                          /00016201/ [Concomitant]
     Dosage: 12.5 MG, UNKNOWN/D
     Route: 048
     Dates: start: 20071030, end: 20080107
  8. PREDONINE                          /00016201/ [Concomitant]
     Dosage: 10 MG, UNKNOWN/D
     Route: 048
     Dates: start: 20080108, end: 20080901
  9. PREDONINE                          /00016201/ [Concomitant]
     Dosage: 7.5 MG, UNKNOWN/D
     Route: 048
     Dates: start: 20080902, end: 20100301
  10. PREDONINE                          /00016201/ [Concomitant]
     Dosage: UNK
     Route: 048
     Dates: start: 20100302, end: 20100712
  11. PREDONINE                          /00016201/ [Concomitant]
     Dosage: UNK
     Route: 048
     Dates: start: 20100713, end: 20101206
  12. PREDONINE                          /00016201/ [Concomitant]
     Dosage: 6 MG, UNKNOWN/D
     Route: 048
     Dates: start: 20101207, end: 20110620
  13. PREDONINE                          /00016201/ [Concomitant]
     Dosage: 5 MG, UNKNOWN/D
     Route: 048
     Dates: start: 20110621, end: 20111024
  14. PREDONINE                          /00016201/ [Concomitant]
     Dosage: 4 MG, UNKNOWN/D
     Route: 048
     Dates: start: 20111025, end: 20111226
  15. PREDONINE                          /00016201/ [Concomitant]
     Dosage: 3 MG, UNKNOWN/D
     Route: 048
     Dates: start: 20111227, end: 20121227
  16. PREDONINE                          /00016201/ [Concomitant]
     Dosage: 13 MG, UNKNOWN/D
     Route: 048
     Dates: start: 20121231, end: 20130129
  17. PREDONINE                          /00016201/ [Concomitant]
     Dosage: 10 MG, UNKNOWN/D
     Route: 048
     Dates: start: 20130130
  18. BEZATOL SR [Concomitant]
     Indication: HYPERLIPIDAEMIA
     Dosage: 200 MG, UNKNOWN/D
     Route: 048
  19. TAGAMET                            /00397401/ [Concomitant]
     Indication: GASTRITIS
     Dosage: 600 MG, UNKNOWN/D
     Route: 048
     Dates: start: 20060815
  20. CINAL [Concomitant]
     Indication: SKIN FRAGILITY
     Dosage: 3 G, UNKNOWN/D
     Route: 048
     Dates: start: 20060815
  21. HALCION [Concomitant]
     Indication: INSOMNIA
     Dosage: 0.25 MG, UNKNOWN/D
     Route: 048
     Dates: start: 20060815
  22. METHYCOBAL [Concomitant]
     Indication: NEUROPATHY PERIPHERAL
     Dosage: 1.5 MG, UNKNOWN/D
     Route: 048
     Dates: start: 20080708
  23. METHYLPREDNISOLONE SODIUM SUCCINATE [Concomitant]
     Indication: LUPUS NEPHRITIS
     Dosage: 500 MG, UNKNOWN/D
     Route: 065
     Dates: start: 20121228, end: 20121230

REACTIONS (1)
  - Renal disorder [Recovered/Resolved]
